FAERS Safety Report 8079724-3 (Version None)
Quarter: 2012Q1

REPORT INFORMATION
  Report Type: 
  Country: None (occurrence: None)
  Receive Date: 20120128
  Receipt Date: 20110719
  Transmission Date: 20120608
  Serious: No
  Sender: FDA-Public Use
  Company Number: US-ABBOTT-11P-163-0840351-00

PATIENT
  Age: 62 Year
  Sex: Female

DRUGS (4)
  1. PAXIL [Concomitant]
     Indication: PRODUCT USED FOR UNKNOWN INDICATION
     Dosage: DAILY
  2. HUMIRA [Suspect]
     Indication: ANKYLOSING SPONDYLITIS
     Dates: start: 20110301
  3. CLIMARA [Concomitant]
     Indication: PRODUCT USED FOR UNKNOWN INDICATION
     Dosage: PATCH WEEKLY
     Route: 062
  4. TRAMADOL HCL [Concomitant]
     Indication: PAIN
     Dosage: 37.5/325MG

REACTIONS (2)
  - MUSCULOSKELETAL STIFFNESS [None]
  - NECK PAIN [None]
